FAERS Safety Report 6706498-8 (Version None)
Quarter: 2010Q2

REPORT INFORMATION
  Report Type: 
  Country: None (occurrence: None)
  Receive Date: 20100423
  Receipt Date: 20091210
  Transmission Date: 20101027
  Serious: No
  Sender: FDA-Public Use
  Company Number: ALL1-2009-03998

PATIENT
  Age: 37 Year
  Sex: Female

DRUGS (2)
  1. VYVANSE [Suspect]
     Indication: DRUG USE FOR UNKNOWN INDICATION
     Dosage: 30 MG, 1X/DAY:QD, ORAL
     Route: 048
     Dates: start: 20091201
  2. LITHIUM CARBONATE [Concomitant]

REACTIONS (2)
  - PAIN IN EXTREMITY [None]
  - RENAL PAIN [None]
